FAERS Safety Report 26046687 (Version 2)
Quarter: 2025Q4

REPORT INFORMATION
  Report Type: Spontaneous
  Country: US (occurrence: US)
  Receive Date: 20251114
  Receipt Date: 20251119
  Transmission Date: 20260119
  Serious: Yes (Hospitalization)
  Sender: SANOFI AVENTIS
  Company Number: US-SA-2025SA334515

PATIENT
  Sex: Male
  Weight: 131.81 kg

DRUGS (1)
  1. DUPIXENT [Suspect]
     Active Substance: DUPILUMAB
     Indication: Pulmonary eosinophilia
     Dosage: 200 MG, QOW
     Route: 058

REACTIONS (3)
  - Hospitalisation [Unknown]
  - Back pain [Unknown]
  - Product use in unapproved indication [Unknown]
